FAERS Safety Report 20521188 (Version 2)
Quarter: 2022Q2

REPORT INFORMATION
  Report Type: Spontaneous
  Country: AT (occurrence: AT)
  Receive Date: 20220226
  Receipt Date: 20220413
  Transmission Date: 20220721
  Serious: Yes (Hospitalization, Other)
  Sender: FDA-Public Use
  Company Number: None

PATIENT
  Age: 41 Year
  Sex: Female

DRUGS (61)
  1. DOCETAXEL [Suspect]
     Active Substance: DOCETAXEL
     Indication: HER2 positive breast cancer
     Dosage: Q3W - EVERY 3 WEEKS?MOST RECENT DATE OF DRUG ADMINISTRATION PRIOR TO AE: 12/JAN/2017 AND 20/JAN/2016
     Route: 042
     Dates: start: 20161020, end: 20161020
  2. DOCETAXEL [Suspect]
     Active Substance: DOCETAXEL
     Route: 042
     Dates: start: 20161111, end: 20161111
  3. DOCETAXEL [Suspect]
     Active Substance: DOCETAXEL
     Route: 042
     Dates: start: 20170112
  4. DOCETAXEL [Suspect]
     Active Substance: DOCETAXEL
     Route: 042
     Dates: start: 20161201, end: 20161222
  5. TUCATINIB [Suspect]
     Active Substance: TUCATINIB
     Indication: HER2 positive breast cancer
     Dosage: B.I.D. - TWICE DAILY
     Route: 048
     Dates: start: 20210430
  6. CYCLOPHOSPHAMIDE [Suspect]
     Active Substance: CYCLOPHOSPHAMIDE
     Indication: HER2 positive breast cancer
     Dosage: OTHER
     Route: 042
     Dates: start: 20161005, end: 20161005
  7. EPIRUBICIN [Suspect]
     Active Substance: EPIRUBICIN
     Indication: HER2 positive breast cancer
     Dosage: MOST RECENT DATE OF DRUG ADMINISTRATION PRIOR TO AE: 05/OCT/2016
     Route: 042
     Dates: start: 20161005
  8. PERTUZUMAB [Suspect]
     Active Substance: PERTUZUMAB
     Indication: HER2 positive breast cancer
     Dosage: Q3W - EVERY 3 WEEKS?MOST RECENT DATE OF DRUG ADMINISTRATION PRIOR TO AE: 06/SEP/2019 AND 20/OCT/2016
     Route: 042
     Dates: start: 20161020, end: 20161020
  9. PERTUZUMAB [Suspect]
     Active Substance: PERTUZUMAB
     Route: 042
     Dates: start: 20170112, end: 20170112
  10. PERTUZUMAB [Suspect]
     Active Substance: PERTUZUMAB
     Route: 042
     Dates: start: 20190906, end: 20210409
  11. PERTUZUMAB [Suspect]
     Active Substance: PERTUZUMAB
     Route: 042
     Dates: start: 20170227
  12. ADO-TRASTUZUMAB EMTANSINE [Suspect]
     Active Substance: ADO-TRASTUZUMAB EMTANSINE
     Indication: HER2 positive breast cancer
     Dosage: Q3W - EVERY 3 WEEKS?MOST RECENT DATE OF DRUG ADMINISTRATION PRIOR TO AE: 16/AUG/2019
     Route: 042
     Dates: start: 20180205
  13. TRASTUZUMAB [Suspect]
     Active Substance: TRASTUZUMAB
     Indication: HER2 positive breast cancer
     Dosage: Q3W - EVERY 3 WEEKS?MOST RECENT DATE OF DRUG ADMINISTRATION PRIOR TO AE: 06/SEP/2019 AND 20/OCT/2016
     Route: 041
     Dates: start: 20161020, end: 20161020
  14. TRASTUZUMAB [Suspect]
     Active Substance: TRASTUZUMAB
     Route: 041
     Dates: start: 20170112, end: 20170112
  15. TRASTUZUMAB [Suspect]
     Active Substance: TRASTUZUMAB
     Route: 041
     Dates: start: 20170227
  16. TRASTUZUMAB [Suspect]
     Active Substance: TRASTUZUMAB
     Route: 041
     Dates: start: 20190906
  17. CAPECITABINE [Suspect]
     Active Substance: CAPECITABINE
     Indication: HER2 positive breast cancer
     Route: 048
     Dates: start: 20210430, end: 20210903
  18. CAPECITABINE [Suspect]
     Active Substance: CAPECITABINE
     Route: 048
     Dates: start: 20210904
  19. DEXAMETHASONE [Concomitant]
     Active Substance: DEXAMETHASONE
     Indication: Prophylaxis
     Route: 048
     Dates: start: 20161202, end: 20161203
  20. SERTRALINE HYDROCHLORIDE [Concomitant]
     Active Substance: SERTRALINE HYDROCHLORIDE
     Indication: Product used for unknown indication
     Route: 048
     Dates: end: 201710
  21. XGEVA [Concomitant]
     Active Substance: DENOSUMAB
     Indication: Product used for unknown indication
     Dosage: ONGOING CHECKED
     Route: 042
     Dates: start: 20161201
  22. XGEVA [Concomitant]
     Active Substance: DENOSUMAB
     Dosage: ONGOING CHECKED
     Route: 042
     Dates: start: 20161201
  23. DEXIBUPROFEN [Concomitant]
     Active Substance: DEXIBUPROFEN
     Indication: Product used for unknown indication
     Dosage: ONGOING CHECKED
     Dates: start: 20210312
  24. ENTEROBENE [Concomitant]
     Indication: Diarrhoea
     Dosage: ONGOING CHECKED
     Dates: start: 20171127
  25. SUCRALAN [Concomitant]
     Indication: Product used for unknown indication
     Dosage: ONGOING NOT CHECKED
  26. BISOPROLOL FUMARATE [Concomitant]
     Active Substance: BISOPROLOL FUMARATE
     Indication: Prophylaxis
     Dosage: ONGOING CHECKED
     Route: 048
     Dates: start: 20170227
  27. BISOPROLOL FUMARATE [Concomitant]
     Active Substance: BISOPROLOL FUMARATE
     Dosage: ONGOING CHECKED
     Dates: start: 20161117, end: 20170226
  28. VITAMINS WITH MINERALS [Concomitant]
     Active Substance: MINERALS\VITAMINS
     Indication: Osteoporosis
     Dosage: ONGOING CHECKED
     Route: 048
     Dates: start: 20161112
  29. SERTRALINE HYDROCHLORIDE [Concomitant]
     Active Substance: SERTRALINE HYDROCHLORIDE
     Indication: Product used for unknown indication
     Dosage: ONGOING CHECKED
     Dates: start: 20171016
  30. HYDROMORPHONE HYDROCHLORIDE [Concomitant]
     Active Substance: HYDROMORPHONE HYDROCHLORIDE
     Indication: Nausea
     Dosage: ONGOING CHECKED
     Route: 048
     Dates: start: 20210410
  31. HYDROMORPHONE HYDROCHLORIDE [Concomitant]
     Active Substance: HYDROMORPHONE HYDROCHLORIDE
     Dates: end: 201706
  32. HYDROMORPHONE HYDROCHLORIDE [Concomitant]
     Active Substance: HYDROMORPHONE HYDROCHLORIDE
     Dates: start: 20190816, end: 20210326
  33. HYDROMORPHONE HYDROCHLORIDE [Concomitant]
     Active Substance: HYDROMORPHONE HYDROCHLORIDE
     Dates: start: 20210326, end: 20210409
  34. ONDANSETRON HYDROCHLORIDE [Concomitant]
     Active Substance: ONDANSETRON HYDROCHLORIDE
     Indication: Nausea
     Dosage: ONGOING CHECKED
     Dates: start: 20181105
  35. RAMIPRIL [Concomitant]
     Active Substance: RAMIPRIL
     Indication: Cardiovascular event prophylaxis
     Dosage: ONGOING CHECKED
     Route: 048
     Dates: start: 20170227
  36. AMOXICILLIN\CLAVULANATE POTASSIUM [Concomitant]
     Active Substance: AMOXICILLIN\CLAVULANATE POTASSIUM
     Indication: Febrile neutropenia
     Route: 048
     Dates: start: 20161212, end: 20161216
  37. ARANESP [Concomitant]
     Active Substance: DARBEPOETIN ALFA
     Indication: Anaemia
     Route: 048
     Dates: start: 20161201, end: 201701
  38. DEXAMETHASONE [Concomitant]
     Active Substance: DEXAMETHASONE
     Indication: Nausea
     Route: 048
     Dates: start: 20180817, end: 20180831
  39. DEXAMETHASONE [Concomitant]
     Active Substance: DEXAMETHASONE
     Indication: Product used for unknown indication
  40. FENTANYL [Concomitant]
     Active Substance: FENTANYL
     Indication: Pain
     Route: 062
     Dates: end: 201706
  41. FENTANYL [Concomitant]
     Active Substance: FENTANYL
     Indication: Product used for unknown indication
  42. HALCION [Concomitant]
     Active Substance: TRIAZOLAM
     Indication: Sleep disorder
     Route: 048
     Dates: start: 2016, end: 201702
  43. HALDOL [Concomitant]
     Active Substance: HALOPERIDOL
     Indication: Nausea
     Route: 048
     Dates: end: 201702
  44. IMODIUM [Concomitant]
     Active Substance: LOPERAMIDE HYDROCHLORIDE
     Indication: Diarrhoea
     Route: 048
     Dates: start: 20171106
  45. KCL [Concomitant]
     Active Substance: POTASSIUM CHLORIDE
     Indication: Hypokalaemia
     Route: 048
     Dates: start: 20161117, end: 201702
  46. LASIX [Concomitant]
     Active Substance: FUROSEMIDE
     Indication: Oedema
     Route: 042
     Dates: start: 20161112, end: 201611
  47. LASIX [Concomitant]
     Active Substance: FUROSEMIDE
     Route: 048
     Dates: start: 20161114
  48. LIPEGFILGRASTIM [Concomitant]
     Active Substance: LIPEGFILGRASTIM
     Indication: Neutropenia
     Route: 058
     Dates: start: 20170113, end: 20170203
  49. POLYETHYLENE GLYCOLS [Concomitant]
     Active Substance: POLYETHYLENE GLYCOLS
     Indication: Pharyngitis
     Route: 061
     Dates: start: 20161208, end: 20161222
  50. METOCLOPRAMIDE [Concomitant]
     Active Substance: METOCLOPRAMIDE
     Indication: Product used for unknown indication
     Route: 042
     Dates: start: 20180205, end: 20190816
  51. GUAR [Concomitant]
     Indication: Product used for unknown indication
     Route: 048
     Dates: end: 201706
  52. MOVICOL [Concomitant]
     Active Substance: POLYETHYLENE GLYCOL 3350\POTASSIUM CHLORIDE\SODIUM BICARBONATE\SODIUM CHLORIDE
     Indication: Product used for unknown indication
     Route: 048
  53. PERFALGAN [Concomitant]
     Active Substance: ACETAMINOPHEN
     Indication: Febrile neutropenia
     Route: 042
     Dates: start: 20161208, end: 20161212
  54. PANTOPRAZOLE SODIUM [Concomitant]
     Active Substance: PANTOPRAZOLE SODIUM
     Indication: Product used for unknown indication
     Route: 048
     Dates: start: 20161031, end: 20161123
  55. PASPERTIN [Concomitant]
     Indication: Nausea
     Route: 042
     Dates: end: 20161113
  56. TAZOBACTAM [Concomitant]
     Active Substance: TAZOBACTAM
     Indication: Febrile neutropenia
     Route: 042
     Dates: start: 20161208, end: 20161212
  57. ALPRAZOLAM [Concomitant]
     Active Substance: ALPRAZOLAM
     Indication: Product used for unknown indication
     Route: 048
     Dates: start: 20161117
  58. XARELTO [Concomitant]
     Active Substance: RIVAROXABAN
     Indication: Thrombosis
     Route: 048
     Dates: start: 20161026, end: 201612
  59. ZOFRAN [Concomitant]
     Active Substance: ONDANSETRON HYDROCHLORIDE
     Indication: Nausea
     Route: 048
     Dates: start: 20161123, end: 20170204
  60. FILGRASTIM [Concomitant]
     Active Substance: FILGRASTIM
     Indication: Febrile neutropenia
     Route: 042
     Dates: start: 20161208, end: 20161211
  61. CEOLAT [Concomitant]
     Indication: Nausea
     Route: 048
     Dates: start: 20161112, end: 20161221

REACTIONS (1)
  - Epilepsy [Unknown]

NARRATIVE: CASE EVENT DATE: 20220131
